FAERS Safety Report 18137503 (Version 1)
Quarter: 2020Q3

REPORT INFORMATION
  Report Type: Spontaneous
  Country: IN (occurrence: IN)
  Receive Date: 20200812
  Receipt Date: 20200812
  Transmission Date: 20201103
  Serious: Yes (Other)
  Sender: FDA-Public Use
  Company Number: IN-MTPC-MTDA2020-0059923

PATIENT

DRUGS (1)
  1. RADICAVA [Suspect]
     Active Substance: EDARAVONE
     Indication: PRODUCT USED FOR UNKNOWN INDICATION
     Dosage: UNK
     Route: 042
     Dates: start: 2018, end: 2019

REACTIONS (5)
  - Vascular rupture [Unknown]
  - Poor venous access [Unknown]
  - Mobility decreased [Unknown]
  - Therapeutic response unexpected [Unknown]
  - Muscle atrophy [Unknown]
